FAERS Safety Report 17899770 (Version 1)
Quarter: 2020Q2

REPORT INFORMATION
  Report Type: Spontaneous
  Country: US (occurrence: US)
  Receive Date: 20200615
  Receipt Date: 20200615
  Transmission Date: 20200714
  Serious: No
  Sender: FDA-Public Use
  Company Number: None

PATIENT
  Age: 34 Year
  Sex: Female

DRUGS (1)
  1. TACROLIMUS CAP 1MG [Suspect]
     Active Substance: TACROLIMUS
     Route: 048
     Dates: start: 201812

REACTIONS (4)
  - Photosensitivity reaction [None]
  - Blood magnesium increased [None]
  - Condition aggravated [None]
  - Blood potassium increased [None]

NARRATIVE: CASE EVENT DATE: 20200601
